FAERS Safety Report 8311199-9 (Version None)
Quarter: 2012Q2

REPORT INFORMATION
  Report Type: 
  Country: None (occurrence: None)
  Receive Date: 20120425
  Receipt Date: 20120423
  Transmission Date: 20120825
  Serious: No
  Sender: FDA-Public Use
  Company Number: US-B.I. PHARMACEUTICALS,INC./RIDGEFIELD-2012-BP-09276BP

PATIENT
  Sex: Male

DRUGS (4)
  1. PRADAXA [Suspect]
     Indication: ATRIAL FIBRILLATION
     Dosage: 300 MG
     Route: 048
     Dates: start: 20110801
  2. LOSARTAN POTASSIUM [Concomitant]
     Indication: HYPERTENSION
     Route: 048
     Dates: start: 20120201
  3. VERAPAMIL [Concomitant]
     Indication: ATRIAL FIBRILLATION
     Dosage: 240 MG
     Route: 048
     Dates: start: 20030101
  4. GLUCOSAMINE [Concomitant]
     Indication: ARTHRITIS
     Route: 048
     Dates: start: 20040101

REACTIONS (2)
  - BLOOD URINE PRESENT [None]
  - NEPHROLITHIASIS [None]
